FAERS Safety Report 5868733-8 (Version None)
Quarter: 2008Q3

REPORT INFORMATION
  Report Type: 
  Country: None (occurrence: None)
  Receive Date: 20080903
  Receipt Date: 20080902
  Transmission Date: 20090109
  Serious: Yes (Life-Threatening, Hospitalization)
  Sender: FDA-Public Use
  Company Number: US-EISAI MEDICAL RESEARCH-E2020-02105-CLI-US

PATIENT
  Sex: Female
  Weight: 66.2 kg

DRUGS (4)
  1. E2020-SR [Suspect]
     Indication: DEMENTIA ALZHEIMER'S TYPE
     Route: 048
     Dates: start: 20071022, end: 20080108
  2. E2020-SR [Suspect]
     Dosage: COMMERCIAL ARICEPT 10 MG
     Route: 048
     Dates: start: 20080110
  3. MEMANTINE HCL [Concomitant]
     Indication: DEMENTIA ALZHEIMER'S TYPE
     Route: 048
     Dates: start: 20040101
  4. ASPIRIN [Concomitant]
     Indication: PROPHYLAXIS
     Route: 048
     Dates: start: 19950101

REACTIONS (1)
  - PULMONARY EMBOLISM [None]
